FAERS Safety Report 18789391 (Version 1)
Quarter: 2021Q1

REPORT INFORMATION
  Report Type: Other
  Country: US (occurrence: US)
  Receive Date: 20210125
  Receipt Date: 20210125
  Transmission Date: 20210419
  Serious: No
  Sender: FDA-Public Use
  Company Number: US-ACORDA-ACO_166330_2020

PATIENT
  Sex: Male

DRUGS (24)
  1. FISH OIL [Concomitant]
     Active Substance: FISH OIL
  2. LEVAQUIN [Concomitant]
     Active Substance: LEVOFLOXACIN
  3. TYLENOL [Concomitant]
     Active Substance: ACETAMINOPHEN
  4. BIOTIN [Concomitant]
     Active Substance: BIOTIN
  5. GLATIRAMER [Concomitant]
     Active Substance: GLATIRAMER
  6. CELEBREX [Concomitant]
     Active Substance: CELECOXIB
  7. FENOFIBRATE. [Concomitant]
     Active Substance: FENOFIBRATE
  8. JANUMET [Concomitant]
     Active Substance: METFORMIN HYDROCHLORIDE\SITAGLIPTIN PHOSPHATE
  9. SUPER B [Concomitant]
  10. VITAMIN D3 [Concomitant]
     Active Substance: CHOLECALCIFEROL
  11. CRANBERRY. [Concomitant]
     Active Substance: CRANBERRY
  12. INDAPAMIDE. [Concomitant]
     Active Substance: INDAPAMIDE
  13. METOPROLOL TARTRATE. [Concomitant]
     Active Substance: METOPROLOL TARTRATE
  14. AMPYRA [Suspect]
     Active Substance: DALFAMPRIDINE
     Indication: MULTIPLE SCLEROSIS
     Dosage: 10 MILLIGRAM, BID
     Route: 048
     Dates: start: 20150813
  15. VITAMIN B12 [Concomitant]
     Active Substance: CYANOCOBALAMIN
  16. BENTYL [Concomitant]
     Active Substance: DICYCLOMINE HYDROCHLORIDE
  17. MODAFINIL. [Concomitant]
     Active Substance: MODAFINIL
  18. WELLBEN [Concomitant]
  19. ACYCLOVIR. [Concomitant]
     Active Substance: ACYCLOVIR
  20. BACLOFEN. [Concomitant]
     Active Substance: BACLOFEN
  21. MAG?OX [Concomitant]
     Active Substance: MAGNESIUM OXIDE
  22. ASPIRIN. [Concomitant]
     Active Substance: ASPIRIN
  23. FLORAJEN3 [Concomitant]
  24. MULTIVITAMIN [Concomitant]
     Active Substance: VITAMINS

REACTIONS (4)
  - Musculoskeletal stiffness [Unknown]
  - Bladder spasm [Unknown]
  - Muscle spasms [Unknown]
  - Bladder disorder [Unknown]
